FAERS Safety Report 8068399-5 (Version None)
Quarter: 2012Q1

REPORT INFORMATION
  Report Type: 
  Country: None (occurrence: None)
  Receive Date: 20120124
  Receipt Date: 20111018
  Transmission Date: 20120608
  Serious: No
  Sender: FDA-Public Use
  Company Number: US-AMGEN-USASP2011053873

PATIENT
  Age: 56 Year
  Sex: Female

DRUGS (4)
  1. DICLOFENAC [Concomitant]
  2. PLAQUENIL [Concomitant]
  3. PROLIA [Suspect]
     Indication: OSTEOPOROSIS
     Dosage: 60 MG, Q6MO
     Dates: start: 20110801
  4. CIMZIA [Concomitant]

REACTIONS (1)
  - BACK PAIN [None]
